FAERS Safety Report 11125753 (Version 2)
Quarter: 2015Q2

REPORT INFORMATION
  Report Type: Spontaneous
  Country: FR (occurrence: FR)
  Receive Date: 20150520
  Receipt Date: 20150529
  Transmission Date: 20150821
  Serious: Yes (Life-Threatening, Hospitalization, Other)
  Sender: FDA-Public Use
  Company Number: FR-RB PHARMACEUTICALS LIMITED-RB-079338-2015

PATIENT
  Age: 45 Year

DRUGS (2)
  1. SUBUTEX [Suspect]
     Active Substance: BUPRENORPHINE HYDROCHLORIDE
     Dosage: UNK, INCREASED TO 4 MG IN THR MORNING
     Route: 065
  2. SUBUTEX [Suspect]
     Active Substance: BUPRENORPHINE HYDROCHLORIDE
     Indication: DRUG DEPENDENCE
     Dosage: 0.4 MG 3 TABLETS, TID
     Route: 042

REACTIONS (9)
  - Peripheral embolism [Unknown]
  - Subcutaneous abscess [Unknown]
  - Intentional product misuse [Unknown]
  - Ischaemic stroke [Unknown]
  - Intentional product use issue [Unknown]
  - Aortic valve disease [Unknown]
  - Septic embolus [Unknown]
  - Cardiac valve vegetation [Unknown]
  - Aortic valve incompetence [Unknown]

NARRATIVE: CASE EVENT DATE: 20150425
